FAERS Safety Report 9450410 (Version 3)
Quarter: 2013Q3

REPORT INFORMATION
  Report Type: Spontaneous
  Country: IT (occurrence: IT)
  Receive Date: 20130809
  Receipt Date: 20130927
  Transmission Date: 20140515
  Serious: Yes (Life-Threatening, Hospitalization)
  Sender: FDA-Public Use
  Company Number: IT-ASTRAZENECA-2013SE62249

PATIENT
  Age: 8687 Day
  Sex: Female

DRUGS (6)
  1. SEROQUEL [Suspect]
     Indication: SUICIDE ATTEMPT
     Route: 048
     Dates: start: 20130610, end: 20130610
  2. SEROQUEL [Suspect]
     Indication: PERSONALITY DISORDER
     Route: 048
     Dates: start: 20130610, end: 20130610
  3. SEROQUEL [Suspect]
     Indication: SUICIDE ATTEMPT
     Route: 048
     Dates: start: 20130612
  4. SEROQUEL [Suspect]
     Indication: PERSONALITY DISORDER
     Route: 048
     Dates: start: 20130612
  5. RISPERDAL [Suspect]
     Indication: SUICIDE ATTEMPT
     Route: 048
     Dates: start: 20130610, end: 20130610
  6. RISPERDAL [Suspect]
     Indication: PERSONALITY DISORDER
     Route: 048
     Dates: start: 20130610, end: 20130610

REACTIONS (6)
  - Intentional overdose [Recovered/Resolved]
  - Suicide attempt [Recovered/Resolved]
  - Agitation [Recovered/Resolved]
  - Drug abuse [Recovered/Resolved]
  - Sedation [Recovered/Resolved]
  - Blood pressure decreased [Recovered/Resolved]
